FAERS Safety Report 4543944-2 (Version None)
Quarter: 2005Q1

REPORT INFORMATION
  Report Type: 
  Country: None (occurrence: None)
  Receive Date: 20050103
  Receipt Date: 20040112
  Transmission Date: 20050727
  Serious: Yes (Hospitalization)
  Sender: FDA-Public Use
  Company Number: GXKR2004GB00500

PATIENT
  Age: 48 Year
  Sex: Female
  Weight: 84 kg

DRUGS (7)
  1. FUROSEMIDE (NGX) (FUROSEMIDE) [Suspect]
     Indication: OEDEMA
     Dosage: 40 MG, BID, ORAL
     Route: 048
     Dates: start: 20031001
  2. PERINDOPRIL (PERINDOPRIL) [Suspect]
     Indication: HYPERTENSION
     Dosage: 8 MG, QD, ORAL
     Route: 048
     Dates: end: 20031222
  3. ALENDRONATE SODIUM [Concomitant]
  4. RANITIDINE [Concomitant]
  5. ATENOLOL [Concomitant]
  6. TACROLIMUS (TACROLIMUS) [Concomitant]
  7. PREDNISOLONE [Concomitant]

REACTIONS (2)
  - HYPEROSMOLAR STATE [None]
  - PANCREATITIS [None]
